FAERS Safety Report 5936865-1 (Version None)
Quarter: 2008Q4

REPORT INFORMATION
  Report Type: 
  Country: None (occurrence: None)
  Receive Date: 20081031
  Receipt Date: 20081028
  Transmission Date: 20090506
  Serious: Yes (Death, Hospitalization)
  Sender: FDA-Public Use
  Company Number: GB-JNJFOC-20080705906

PATIENT
  Age: 74 Year
  Sex: Male
  Weight: 90 kg

DRUGS (8)
  1. HALOPERIDOL [Suspect]
     Indication: DRUG USE FOR UNKNOWN INDICATION
     Route: 065
  2. ARTHROTEC [Concomitant]
     Route: 065
  3. BENDROFLUMETHAZIDE [Concomitant]
     Route: 065
  4. DONEPEZIL HCL [Concomitant]
     Route: 065
  5. LORAZEPAM [Concomitant]
     Route: 065
  6. QUETIAPINE FUMARATE [Concomitant]
     Route: 065
  7. SIMVASTATIN [Concomitant]
     Route: 065
  8. TAMSULOSIN HCL [Concomitant]
     Route: 065

REACTIONS (5)
  - AGGRESSION [None]
  - BRONCHOPNEUMONIA [None]
  - DELIRIUM [None]
  - ENCEPHALITIS [None]
  - MUSCULOSKELETAL STIFFNESS [None]
